FAERS Safety Report 17303520 (Version 1)
Quarter: 2020Q1

REPORT INFORMATION
  Report Type: Spontaneous
  Country: US (occurrence: US)
  Receive Date: 20200122
  Receipt Date: 20200122
  Transmission Date: 20200409
  Serious: No
  Sender: FDA-Public Use
  Company Number: US-KVK-TECH, INC-2079311

PATIENT
  Sex: Female

DRUGS (2)
  1. CYCLOBENZAPRINE HYDROCHLORIDE. [Suspect]
     Active Substance: CYCLOBENZAPRINE HYDROCHLORIDE
     Indication: MUSCLE SPASMS
     Route: 048
  2. ATENOLOL. [Concomitant]
     Active Substance: ATENOLOL
     Route: 065

REACTIONS (6)
  - Blood pressure increased [Recovered/Resolved]
  - Insomnia [Recovered/Resolved]
  - Heart rate increased [Recovered/Resolved]
  - Paraesthesia [Recovered/Resolved]
  - Product use in unapproved indication [Recovered/Resolved]
  - Psychomotor hyperactivity [Recovered/Resolved]
